FAERS Safety Report 7597176-4 (Version None)
Quarter: 2011Q3

REPORT INFORMATION
  Report Type: 
  Country: None (occurrence: None)
  Receive Date: 20110708
  Receipt Date: 20100712
  Transmission Date: 20111222
  Serious: No
  Sender: FDA-Public Use
  Company Number: US-GLAXOSMITHKLINE-A0869737A

PATIENT
  Sex: Female

DRUGS (10)
  1. SIMVASTATIN [Concomitant]
  2. NUVIGIL [Concomitant]
  3. NEXIUM [Concomitant]
  4. HYDROCORTISONE TAB [Concomitant]
  5. SOLU-CORTEF [Concomitant]
  6. BUPROPION HYDROCHLORIDE [Concomitant]
     Route: 048
  7. HYDROCHLOROTHIAZIDE [Concomitant]
  8. LEVOTHYROXINE SODIUM [Concomitant]
  9. FLOVENT [Suspect]
     Indication: MULTIPLE ALLERGIES
     Dosage: 2SPR TWICE PER DAY
     Route: 055
     Dates: start: 20090807
  10. PULMICORT [Concomitant]

REACTIONS (2)
  - DRUG ADMINISTRATION ERROR [None]
  - INCORRECT ROUTE OF DRUG ADMINISTRATION [None]
